FAERS Safety Report 5370776-8 (Version None)
Quarter: 2007Q2

REPORT INFORMATION
  Report Type: 
  Country: None (occurrence: None)
  Receive Date: 20070626
  Receipt Date: 20070619
  Transmission Date: 20071010
  Serious: Yes (Death, Life-Threatening, Hospitalization)
  Sender: FDA-Public Use
  Company Number: B0376726A

PATIENT
  Age: 82 Year
  Sex: Male

DRUGS (1)
  1. PAXIL [Suspect]
     Route: 048
     Dates: start: 20041101

REACTIONS (4)
  - HYPERTHERMIA [None]
  - INFECTION [None]
  - MUSCLE RIGIDITY [None]
  - TREMOR [None]
